FAERS Safety Report 8838580 (Version 2)
Quarter: 2012Q4

REPORT INFORMATION
  Report Type: 
  Country: US (occurrence: US)
  Receive Date: 20121012
  Receipt Date: 20121116
  Transmission Date: 20130627
  Serious: Yes (Death)
  Sender: FDA-Public Use
  Company Number: US-CELGENEUS-163-21880-12101418

PATIENT
  Age: 55 Year
  Sex: Female

DRUGS (6)
  1. REVLIMID [Suspect]
     Indication: T-CELL LYMPHOMA
     Dosage: 20 Milligram
     Route: 048
     Dates: start: 20120902, end: 20120909
  2. TEGRETOL [Concomitant]
     Indication: SEIZURE
     Dosage: 200 Milligram
     Route: 065
  3. DAPSONE [Concomitant]
     Indication: PNEUMOCYSTIS CARINII PROPHYLAXIS
     Dosage: 100 Milligram
     Route: 065
  4. ZOSYN [Concomitant]
     Indication: DRUG USE FOR UNKNOWN INDICATION
     Dosage: 18000 Milligram
     Route: 041
  5. VALTREX [Concomitant]
     Indication: ANTIVIRAL PROPHYLAXIS
     Dosage: 1000 Milligram
     Route: 065
  6. VANCOMYCIN [Concomitant]
     Indication: DRUG USE FOR UNKNOWN INDICATION
     Dosage: 2000 Milligram
     Route: 041

REACTIONS (1)
  - Mycosis fungoides [Fatal]
